FAERS Safety Report 15537461 (Version 4)
Quarter: 2019Q2

REPORT INFORMATION
  Report Type: Spontaneous
  Country: US (occurrence: US)
  Receive Date: 20181022
  Receipt Date: 20190625
  Transmission Date: 20190711
  Serious: Yes (Hospitalization, Other)
  Sender: FDA-Public Use
  Company Number: US-DSJP-DSU-2017-139490

PATIENT

DRUGS (2)
  1. BENICAR [Suspect]
     Active Substance: OLMESARTAN MEDOXOMIL
     Indication: BLOOD PRESSURE MANAGEMENT
     Dosage: 40 MG, QD
     Route: 048
     Dates: start: 200406
  2. BENICAR [Suspect]
     Active Substance: OLMESARTAN MEDOXOMIL
     Dosage: BENICAR 1/2 TABLET

REACTIONS (10)
  - Duodenal ulcer [Unknown]
  - Product administration error [Unknown]
  - Oesophageal ulcer [Unknown]
  - Gastric ulcer [Unknown]
  - Sprue-like enteropathy [Recovering/Resolving]
  - Haemorrhoids [Recovered/Resolved]
  - Large intestine polyp [Recovered/Resolved]
  - Coeliac disease [Recovered/Resolved]
  - Crohn^s disease [Not Recovered/Not Resolved]
  - Peptic ulcer [Unknown]

NARRATIVE: CASE EVENT DATE: 2008
